FAERS Safety Report 7208852-7 (Version None)
Quarter: 2011Q1

REPORT INFORMATION
  Report Type: 
  Country: None (occurrence: None)
  Receive Date: 20110104
  Receipt Date: 20101222
  Transmission Date: 20110831
  Serious: No
  Sender: FDA-Public Use
  Company Number: US-PFIZER INC-2010143300

PATIENT
  Sex: Male
  Weight: 97 kg

DRUGS (5)
  1. SYNTHROID [Concomitant]
     Indication: THYROID DISORDER
     Dosage: UNK
  2. CLONAZEPAM [Concomitant]
     Indication: DEPRESSION
     Dosage: UNK
  3. DEPO-TESTOSTERONE [Suspect]
     Indication: BLOOD TESTOSTERONE DECREASED
     Dosage: 200 MG/ML, IN 2 WEEKS
     Dates: start: 20100501
  4. LISINOPRIL [Concomitant]
     Indication: HYPERTENSION
     Dosage: UNK
  5. METOPROLOL [Concomitant]
     Indication: HYPERTENSION
     Dosage: UNK

REACTIONS (5)
  - BALANCE DISORDER [None]
  - LIBIDO DECREASED [None]
  - ASTHENIA [None]
  - MUSCULAR WEAKNESS [None]
  - DRUG INEFFECTIVE [None]
